FAERS Safety Report 12422983 (Version 1)
Quarter: 2016Q2

REPORT INFORMATION
  Report Type: Spontaneous
  Country: US (occurrence: None)
  Receive Date: 20160531
  Receipt Date: 20160531
  Transmission Date: 20160815
  Serious: Yes (Life-Threatening, Disabling, Other)
  Sender: FDA-Public Use
  Company Number: None

PATIENT
  Age: 47 Year
  Sex: Female
  Weight: 113.4 kg

DRUGS (8)
  1. LOSARTAN POTASSIUM, 100 MG [Suspect]
     Active Substance: LOSARTAN POTASSIUM
     Indication: HYPERTENSION
     Route: 048
  2. HCTZ [Concomitant]
     Active Substance: HYDROCHLOROTHIAZIDE
  3. SIMVASTATIN. [Concomitant]
     Active Substance: SIMVASTATIN
  4. MELOXICAM. [Concomitant]
     Active Substance: MELOXICAM
  5. METAPROLOL [Concomitant]
     Active Substance: METOPROLOL
  6. PAROXETINE. [Concomitant]
     Active Substance: PAROXETINE
  7. AMLODIPINE [Concomitant]
     Active Substance: AMLODIPINE BESYLATE
  8. XANAX [Concomitant]
     Active Substance: ALPRAZOLAM

REACTIONS (22)
  - Constipation [None]
  - Confusional state [None]
  - Night sweats [None]
  - Dyspnoea [None]
  - Wrong drug administered [None]
  - Palpitations [None]
  - Muscle spasms [None]
  - Menorrhagia [None]
  - Cough [None]
  - Cardiac murmur [None]
  - Oedema peripheral [None]
  - Incorrect dose administered [None]
  - Face oedema [None]
  - Headache [None]
  - Fatigue [None]
  - Dizziness [None]
  - Pulmonary congestion [None]
  - Arthralgia [None]
  - Loss of consciousness [None]
  - Product use issue [None]
  - Drug dispensing error [None]
  - Device computer issue [None]

NARRATIVE: CASE EVENT DATE: 20160525
